FAERS Safety Report 7381735 (Version 5)
Quarter: 2015Q4

REPORT INFORMATION
  Report Type: Spontaneous
  Country: US (occurrence: US)
  Receive Date: 20100510
  Receipt Date: 20151124
  Transmission Date: 20160305
  Serious: Yes (Other)
  Sender: FDA-Public Use
  Company Number: US-BAYER-201021616NA

PATIENT
  Age: 43 Year
  Sex: Female
  Weight: 71 kg

DRUGS (10)
  1. ADVIL [Concomitant]
     Active Substance: IBUPROFEN
     Dosage: UNK UNK, PRN
  2. DIAZEPAM. [Concomitant]
     Active Substance: DIAZEPAM
     Dosage: 10 MG, UNK
     Dates: start: 20070206
  3. YASMIN [Suspect]
     Active Substance: DROSPIRENONE\ETHINYL ESTRADIOL
     Route: 048
     Dates: start: 200606
  4. PAROXETINE [Concomitant]
     Active Substance: PAROXETINE\PAROXETINE HYDROCHLORIDE
     Indication: ANXIETY
     Dosage: 10 MG, QD
     Route: 048
  5. PAXIL [Concomitant]
     Active Substance: PAROXETINE HYDROCHLORIDE
     Dosage: UNK
     Dates: start: 2001, end: 2006
  6. DICLOXACILLIN [Concomitant]
     Active Substance: DICLOXACILLIN
     Dosage: 500 MG, UNK
     Dates: start: 20071205
  7. FLUCONAZOLE. [Concomitant]
     Active Substance: FLUCONAZOLE
     Dosage: 150 MG, UNK
     Dates: start: 20071213
  8. YAZ [Suspect]
     Active Substance: DROSPIRENONE\ETHINYL ESTRADIOL
     Dosage: UNK UNK, QD
     Route: 048
     Dates: start: 200606, end: 200608
  9. XIBROM [Concomitant]
     Active Substance: BROMFENAC SODIUM
  10. DIFLUCAN [Concomitant]
     Active Substance: FLUCONAZOLE

REACTIONS (2)
  - Cerebrovascular accident [None]
  - Embolism arterial [None]

NARRATIVE: CASE EVENT DATE: 20070207
